FAERS Safety Report 5069155-2 (Version None)
Quarter: 2006Q3

REPORT INFORMATION
  Report Type: 
  Country: None (occurrence: None)
  Receive Date: 20060731
  Receipt Date: 20060510
  Transmission Date: 20061208
  Serious: Yes (Death)
  Sender: FDA-Public Use
  Company Number: 200613174GDS

PATIENT
  Age: 55 Year
  Sex: Male
  Weight: 62 kg

DRUGS (2)
  1. APROTININ [Suspect]
     Indication: CARDIAC OPERATION
     Dosage: SEE IMAGE
     Route: 042
  2. HEPARIN [Concomitant]

REACTIONS (5)
  - ACUTE RIGHT VENTRICULAR FAILURE [None]
  - CARDIAC PROCEDURE COMPLICATION [None]
  - PULMONARY ARTERIAL WEDGE PRESSURE INCREASED [None]
  - PULMONARY HYPERTENSION [None]
  - PULMONARY THROMBOSIS [None]
